FAERS Safety Report 14149494 (Version 1)
Quarter: 2017Q4

REPORT INFORMATION
  Report Type: Other
  Country: FR (occurrence: FR)
  Receive Date: 20171101
  Receipt Date: 20171101
  Transmission Date: 20180321
  Serious: Yes (Hospitalization)
  Sender: FDA-Public Use
  Company Number: FR-HIKMA PHARMACEUTICALS CO. LTD-2017FR014645

PATIENT

DRUGS (2)
  1. HUMIRA [Suspect]
     Active Substance: ADALIMUMAB
     Indication: UVEITIS
     Dosage: 1 DF, ONCE PER TWO WEEK
     Route: 058
     Dates: start: 20150314, end: 201608
  2. REMSIMA [Suspect]
     Active Substance: INFLIXIMAB
     Indication: UVEITIS
     Dosage: 1 DF, EVERY 8 WEEKS
     Route: 003
     Dates: start: 201608, end: 201608

REACTIONS (4)
  - Incorrect route of drug administration [Unknown]
  - Hyperleukocytosis [Not Recovered/Not Resolved]
  - Off label use [Unknown]
  - Myelodysplastic syndrome [Not Recovered/Not Resolved]

NARRATIVE: CASE EVENT DATE: 201608
